FAERS Safety Report 9742703 (Version 1)
Quarter: 2013Q4

REPORT INFORMATION
  Report Type: Spontaneous
  Country: US (occurrence: US)
  Receive Date: 20131210
  Receipt Date: 20131210
  Transmission Date: 20140711
  Serious: No
  Sender: FDA-Public Use
  Company Number: US-GILEAD-2009-0025715

PATIENT
  Sex: Male
  Weight: 84.37 kg

DRUGS (21)
  1. LETAIRIS [Suspect]
     Indication: PULMONARY ARTERIAL HYPERTENSION
     Route: 048
     Dates: start: 20091018
  2. ADVAIR [Concomitant]
  3. SPIRIVA [Concomitant]
  4. TRAVATAN [Concomitant]
  5. DIOVAN [Concomitant]
  6. LOVASTATIN [Concomitant]
  7. VITAMIN B12 [Concomitant]
  8. CIPRO [Concomitant]
  9. ALLOPURINOL [Concomitant]
  10. SINGULAIR [Concomitant]
  11. PRINZIDE [Concomitant]
  12. ZOCOR [Concomitant]
  13. PRILOSEC [Concomitant]
  14. LOPRESSOR [Concomitant]
  15. GLIPIZIDE [Concomitant]
  16. AZOPT [Concomitant]
  17. CARDIZEM [Concomitant]
  18. ASPIRIN [Concomitant]
  19. FERROUS SULFATE [Concomitant]
  20. PLAVIX [Concomitant]
  21. BYETTA [Concomitant]

REACTIONS (1)
  - Dyspnoea [Unknown]
